FAERS Safety Report 4470956-X (Version None)
Quarter: 2004Q4

REPORT INFORMATION
  Report Type: 
  Country: None (occurrence: None)
  Receive Date: 20041011
  Receipt Date: 20040929
  Transmission Date: 20050328
  Serious: Yes (Other)
  Sender: FDA-Public Use
  Company Number: US-JNJFOC-20040900369

PATIENT
  Sex: Male
  Weight: 139.71 kg

DRUGS (28)
  1. DURAGESIC [Suspect]
     Route: 062
  2. DILAUDID [Concomitant]
     Indication: PAIN
     Dosage: AS NEEDED
     Route: 049
  3. FLEXERIL [Concomitant]
     Indication: MUSCLE SPASMS
     Route: 049
  4. ALLOPURINOL [Concomitant]
     Indication: GOUT
     Route: 049
  5. BISACODYL [Concomitant]
     Indication: CONSTIPATION
     Route: 049
  6. BUMETANIDE [Concomitant]
     Route: 049
  7. COLCHICINE [Concomitant]
     Indication: GOUT
     Route: 049
  8. DIGOXIN [Concomitant]
     Route: 049
  9. DOCUSATE [Concomitant]
     Route: 049
  10. GABAPENTIN [Concomitant]
     Dosage: 600 MG TABLET, TAKE ONE-HALF TABLET BY MOUTH THREE TIMES A DAY.
     Route: 049
  11. GLIPIZIDE [Concomitant]
     Route: 049
  12. HUMULIN N [Concomitant]
     Dosage: 100 U/ML INJ NOVOLIN N INJECT 40 UNITS UNDER THE SKIN EVERY MORNING THEN INJECT 30 UNITS PRE DINNER.
     Route: 050
  13. HUMULIN R [Concomitant]
     Dosage: 100 U/ML INJ NOVOLIN R INJ 32 UNITS UNDER THE SKIN EVERY MORNING AND 20 UNITS PRE DINNER.
  14. ISOSORBIDE MONONITRATE [Concomitant]
     Indication: ANGINA PECTORIS
     Route: 049
  15. LACTULOSE [Concomitant]
     Indication: LAXATIVE SUPPORTIVE CARE
     Dosage: 10GM/15ML, 2 TABLESPOONFULS TWICE DAILY.
     Route: 049
  16. LISINOPRIL [Concomitant]
     Indication: BLOOD PRESSURE
     Route: 049
  17. LORATADINE [Concomitant]
     Route: 049
  18. MENTHOL 2/METHYL SALICYLATE [Concomitant]
  19. METOPROLOL SUCCINATE [Concomitant]
     Route: 049
  20. MUPIROCIN [Concomitant]
  21. OMEPRAZOLE [Concomitant]
     Route: 049
  22. PROPOXYPHENE HCL [Concomitant]
     Indication: PAIN
     Route: 049
  23. SIMVASTATIN [Concomitant]
     Dosage: 40 MG, ONE HALF TABLET BY MOUTH AT BEDTIME.
     Route: 049
  24. SODIUM CHLORIDE INJ [Concomitant]
     Indication: NASAL DRYNESS
     Route: 045
  25. SPIRONOLACTONE [Concomitant]
     Indication: DIURETIC THERAPY
     Route: 049
  26. TERBINAFINE HCL [Concomitant]
     Indication: SKIN INFECTION
  27. TRAZODONE HCL [Concomitant]
     Indication: INSOMNIA
     Route: 049
  28. VENLAFAXINE HCL [Concomitant]
     Route: 049

REACTIONS (17)
  - APPLICATION SITE DERMATITIS [None]
  - ASTHENIA [None]
  - BLOOD GLUCOSE INCREASED [None]
  - CONFUSIONAL STATE [None]
  - COUGH [None]
  - DYSPNOEA [None]
  - FAECAL INCONTINENCE [None]
  - HALLUCINATION [None]
  - HOSTILITY [None]
  - MEMORY IMPAIRMENT [None]
  - OEDEMA PERIPHERAL [None]
  - OVERDOSE [None]
  - PAIN EXACERBATED [None]
  - PHARMACEUTICAL PRODUCT COMPLAINT [None]
  - RHINORRHOEA [None]
  - URINARY INCONTINENCE [None]
  - WEIGHT INCREASED [None]
